FAERS Safety Report 9278756 (Version 2)
Quarter: 2013Q2

REPORT INFORMATION
  Report Type: Report from Study
  Country: NL (occurrence: NL)
  Receive Date: 20130508
  Receipt Date: 20130603
  Transmission Date: 20140414
  Serious: Yes (Hospitalization)
  Sender: FDA-Public Use
  Company Number: NL-ASTRAZENECA-2013SE31158

PATIENT
  Age: 20206 Day
  Sex: Male

DRUGS (10)
  1. VANDETANIB [Suspect]
     Indication: MEDULLARY THYROID CANCER
     Route: 048
     Dates: start: 20121129, end: 20130428
  2. THYRAX [Concomitant]
     Indication: HYPOTHYROIDISM
     Route: 048
     Dates: end: 20130128
  3. THYRAX [Concomitant]
     Indication: HYPOTHYROIDISM
     Route: 048
     Dates: start: 20130129, end: 20130227
  4. THYRAX [Concomitant]
     Indication: HYPOTHYROIDISM
     Route: 048
     Dates: start: 20130228
  5. ALFACALCIDOL [Concomitant]
     Indication: HYPOCALCAEMIA
     Route: 048
  6. LOPERAMIDE [Concomitant]
     Indication: DIARRHOEA
     Route: 048
  7. KETOCONAZOL [Concomitant]
     Indication: RASH
     Route: 003
     Dates: start: 20130124
  8. KETOCONAZOL [Concomitant]
     Indication: RASH
     Route: 003
     Dates: start: 20130124
  9. CALCIUM [Concomitant]
     Indication: HYPOCALCAEMIA
     Route: 048
  10. MINOCYCLINE [Concomitant]
     Indication: RASH
     Route: 048
     Dates: start: 20130227, end: 20130501

REACTIONS (1)
  - Acute myocardial infarction [Recovered/Resolved]
